FAERS Safety Report 14235572 (Version 1)
Quarter: 2017Q4

REPORT INFORMATION
  Report Type: Spontaneous
  Country: GB (occurrence: GB)
  Receive Date: 20171129
  Receipt Date: 20171129
  Transmission Date: 20180321
  Serious: Yes (Hospitalization, Disabling)
  Sender: FDA-Public Use
  Company Number: GB-MYLANLABS-2017M1075018

PATIENT
  Age: 43 Year
  Sex: Female

DRUGS (21)
  1. BISACODYL. [Concomitant]
     Active Substance: BISACODYL
     Dosage: 10 MG, AM
  2. LANSOPRAZOLE. [Concomitant]
     Active Substance: LANSOPRAZOLE
     Dosage: 60 MG, QD
  3. LAMOTRIGINE. [Concomitant]
     Active Substance: LAMOTRIGINE
     Dosage: 100 MG, QD
  4. CLOZAPINE. [Suspect]
     Active Substance: CLOZAPINE
     Indication: SCHIZOPHRENIA
     Dosage: 300 MG, QD
     Route: 048
  5. ONDANSETRON [Concomitant]
     Active Substance: ONDANSETRON
     Dosage: 8 MG, QD
  6. DIAZEPAM. [Concomitant]
     Active Substance: DIAZEPAM
     Dosage: 10 MG, QD
  7. FORCEVAL                           /08120001/ [Concomitant]
     Active Substance: MINERALS\VITAMINS
     Dosage: 1 DF, QD
  8. PRUCALOPRIDE [Concomitant]
     Active Substance: PRUCALOPRIDE
     Dosage: 2 MG, QD
  9. ZOLPIDEM [Concomitant]
     Active Substance: ZOLPIDEM\ZOLPIDEM TARTRATE
     Dosage: 10 MG, PM
  10. NEFOPAM [Concomitant]
     Active Substance: NEFOPAM
     Dosage: 180 MG, QD
  11. FERROUS SULFATE. [Concomitant]
     Active Substance: FERROUS SULFATE
     Dosage: 200 MG, QD
  12. LEVOTHYROXINE. [Concomitant]
     Active Substance: LEVOTHYROXINE
     Dosage: 50 ?G, AM
  13. SIMVASTATIN. [Concomitant]
     Active Substance: SIMVASTATIN
     Dosage: 40 MG, PM
  14. ESCITALOPRAM [Concomitant]
     Active Substance: ESCITALOPRAM OXALATE
     Dosage: 25 MG, QD
     Route: 048
  15. CYCLIZINE [Concomitant]
     Active Substance: CYCLIZINE
     Dosage: 50 MG, TID
  16. IPRATROPIUM [Concomitant]
     Active Substance: IPRATROPIUM
     Dosage: 1 DF, PM
     Route: 055
  17. PROMETHAZINE [Concomitant]
     Active Substance: PROMETHAZINE\PROMETHAZINE HYDROCHLORIDE
     Dosage: 50 MG, PM
  18. DOCUSATE SODIUM. [Concomitant]
     Active Substance: DOCUSATE SODIUM
     Dosage: 400 MG, QD
  19. BUPROPION. [Concomitant]
     Active Substance: BUPROPION
     Dosage: 300 MG, QD
  20. RIVASTIGMINE. [Concomitant]
     Active Substance: RIVASTIGMINE
     Dosage: 1 DF, QD
     Route: 062
  21. ADCAL D3 [Concomitant]
     Active Substance: CALCIUM CARBONATE\CHOLECALCIFEROL
     Dosage: 2 DF, QD

REACTIONS (3)
  - Constipation [Unknown]
  - Intestinal obstruction [Recovered/Resolved with Sequelae]
  - Intestinal dilatation [Unknown]
